FAERS Safety Report 8071285-8 (Version None)
Quarter: 2012Q1

REPORT INFORMATION
  Report Type: 
  Country: None (occurrence: None)
  Receive Date: 20120125
  Receipt Date: 20120120
  Transmission Date: 20120608
  Serious: Yes (Death, Hospitalization)
  Sender: FDA-Public Use
  Company Number: BR-BRISTOL-MYERS SQUIBB COMPANY-16362832

PATIENT
  Age: 67 Year
  Sex: Female

DRUGS (1)
  1. ONGLYZA [Suspect]
     Indication: BLOOD GLUCOSE ABNORMAL
     Dosage: STARTED ABOUT 4 MONTHS BEFORE DEATH
     Dates: start: 20110101

REACTIONS (1)
  - RENAL DISORDER [None]
